FAERS Safety Report 19308638 (Version 2)
Quarter: 2021Q2

REPORT INFORMATION
  Report Type: Spontaneous
  Country: GB (occurrence: GB)
  Receive Date: 20210526
  Receipt Date: 20210614
  Transmission Date: 20210717
  Serious: Yes (Life-Threatening)
  Sender: FDA-Public Use
  Company Number: GB-BAYER-2021-144059

PATIENT
  Age: 36 Year
  Sex: Female
  Weight: 61 kg

DRUGS (2)
  1. MIRENA [Suspect]
     Active Substance: LEVONORGESTREL
     Indication: HEAVY MENSTRUAL BLEEDING
     Dosage: 20 ?G PER DAY CONTINUOUSLY
     Route: 015
     Dates: start: 20200112, end: 20210112
  2. IRON [Concomitant]
     Active Substance: IRON
     Indication: ANAEMIA

REACTIONS (6)
  - Alopecia [Not Recovered/Not Resolved]
  - Genital haemorrhage [Recovered/Resolved]
  - Blood loss anaemia [Recovered/Resolved]
  - Abdominal distension [Recovered/Resolved]
  - Palpitations [Recovered/Resolved]
  - Weight increased [Recovered/Resolved]

NARRATIVE: CASE EVENT DATE: 20200112
